FAERS Safety Report 19603146 (Version 1)
Quarter: 2021Q3

REPORT INFORMATION
  Report Type: Spontaneous
  Country: US (occurrence: US)
  Receive Date: 20210723
  Receipt Date: 20210723
  Transmission Date: 20211014
  Serious: Yes (Death, Life-Threatening)
  Sender: FDA-Public Use
  Company Number: US-LA JOLLA PHARMACEUTICAL COMPANY-0000392

PATIENT

DRUGS (6)
  1. ALBUTEROL HFA [Concomitant]
     Active Substance: ALBUTEROL SULFATE
     Dosage: UNK
     Dates: start: 20210312, end: 20210317
  2. BREXANOLONE [Concomitant]
     Active Substance: BREXANOLONE
     Dosage: UNK
     Dates: start: 20200308, end: 20210310
  3. CEFEPIME [Concomitant]
     Active Substance: CEFEPIME HYDROCHLORIDE
     Dosage: 2 GRAM
     Dates: start: 20210311, end: 20210317
  4. GIAPREZA [Suspect]
     Active Substance: ANGIOTENSIN II
     Indication: HYPOTENSION
     Dosage: 2.5 MILLIGRAM, QD
     Dates: start: 20210314, end: 20210315
  5. REMDESIVIR. [Concomitant]
     Active Substance: REMDESIVIR
     Dosage: 200 MILLIGRAM
     Dates: start: 20210305, end: 20210308
  6. ASPIRIN (E.C.) [Concomitant]
     Active Substance: ASPIRIN
     Dosage: 81 MILLIGRAM
     Dates: start: 20210306, end: 20210315

REACTIONS (3)
  - Respiratory failure [Fatal]
  - Intra-abdominal haematoma [Not Recovered/Not Resolved]
  - Death [Fatal]

NARRATIVE: CASE EVENT DATE: 20210305
